FAERS Safety Report 18310719 (Version 1)
Quarter: 2020Q3

REPORT INFORMATION
  Report Type: Other
  Country: CN (occurrence: CN)
  Receive Date: 20200925
  Receipt Date: 20200925
  Transmission Date: 20201103
  Serious: Yes (Other)
  Sender: FDA-Public Use
  Company Number: CN-APOTEX-2020AP018568

PATIENT
  Age: 32 Year
  Sex: Male

DRUGS (2)
  1. SEROXAT [Suspect]
     Active Substance: PAROXETINE HYDROCHLORIDE
     Dosage: 10 MG, QD
     Route: 048
  2. SEROXAT [Suspect]
     Active Substance: PAROXETINE HYDROCHLORIDE
     Indication: ANXIETY
     Dosage: 20 MG, QD
     Route: 048
     Dates: start: 20191120, end: 20200828

REACTIONS (3)
  - Sinus bradycardia [Unknown]
  - Sinus arrhythmia [Unknown]
  - Bundle branch block right [Unknown]
